FAERS Safety Report 5814412-2 (Version None)
Quarter: 2008Q3

REPORT INFORMATION
  Report Type: 
  Country: None (occurrence: None)
  Receive Date: 20080718
  Receipt Date: 20080707
  Transmission Date: 20090109
  Serious: No
  Sender: FDA-Public Use
  Company Number: US-JNJFOC-20080404460

PATIENT
  Sex: Female

DRUGS (1)
  1. DURAGESIC-100 [Suspect]
     Indication: PAIN
     Route: 062

REACTIONS (2)
  - APPLICATION SITE REACTION [None]
  - WRONG TECHNIQUE IN DRUG USAGE PROCESS [None]
